FAERS Safety Report 18668222 (Version 3)
Quarter: 2021Q1

REPORT INFORMATION
  Report Type: Report from Study
  Country: None (occurrence: US)
  Receive Date: 20201228
  Receipt Date: 20210324
  Transmission Date: 20210419
  Serious: No
  Sender: FDA-Public Use
  Company Number: US-BIOVITRUM-2020US7391

PATIENT
  Age: 11 Year
  Sex: Female

DRUGS (4)
  1. ZYRTEC [Concomitant]
     Active Substance: CETIRIZINE HYDROCHLORIDE
  2. VITAMIN D [Concomitant]
     Active Substance: VITAMIN D NOS
  3. KINERET [Suspect]
     Active Substance: ANAKINRA
     Indication: AUTOINFLAMMATORY DISEASE
     Route: 058
     Dates: start: 20201208
  4. KINERET [Suspect]
     Active Substance: ANAKINRA
     Route: 058
     Dates: start: 20201201

REACTIONS (8)
  - Influenza like illness [Unknown]
  - Injection site reaction [Unknown]
  - Syringe issue [Unknown]
  - Condition aggravated [Unknown]
  - Injection site pain [Unknown]
  - Abdominal pain [Unknown]
  - Autoinflammatory disease [Unknown]
  - Off label use [Unknown]

NARRATIVE: CASE EVENT DATE: 20201208
